FAERS Safety Report 5406049-4 (Version None)
Quarter: 2007Q3

REPORT INFORMATION
  Report Type: 
  Country: None (occurrence: None)
  Receive Date: 20070806
  Receipt Date: 20070801
  Transmission Date: 20080115
  Serious: Yes (Hospitalization)
  Sender: FDA-Public Use
  Company Number: B0476272A

PATIENT
  Age: 39 Year
  Sex: Male

DRUGS (10)
  1. EPIVIR [Suspect]
     Indication: ACQUIRED IMMUNODEFICIENCY SYNDROME
     Dosage: 150MG TWICE PER DAY
     Route: 048
     Dates: start: 19961218, end: 19970313
  2. EPIVIR [Suspect]
     Dosage: 150MG TWICE PER DAY
     Route: 048
     Dates: start: 19980710, end: 19991031
  3. EPIVIR [Suspect]
     Dosage: 300MG PER DAY
     Route: 048
     Dates: start: 19991101, end: 20030331
  4. EPIVIR [Suspect]
     Dosage: 150MG TWICE PER DAY
     Route: 048
     Dates: start: 20030401, end: 20030426
  5. EPIVIR [Suspect]
     Dosage: 150MG TWICE PER DAY
     Route: 048
     Dates: start: 20040728
  6. ZIAGEN [Suspect]
     Indication: ACQUIRED IMMUNODEFICIENCY SYNDROME
     Dosage: 600MG PER DAY
     Route: 048
     Dates: start: 20030427, end: 20031224
  7. ZIAGEN [Suspect]
     Dosage: 300MG TWICE PER DAY
     Route: 048
     Dates: start: 20040528, end: 20040629
  8. ZIAGEN [Suspect]
     Dosage: 300MG TWICE PER DAY
     Route: 048
     Dates: start: 20041217
  9. KALETRA [Suspect]
     Indication: ACQUIRED IMMUNODEFICIENCY SYNDROME
     Route: 048
     Dates: start: 20040630, end: 20061123
  10. KALETRA [Concomitant]
     Route: 048
     Dates: start: 20061124

REACTIONS (9)
  - CONVULSION [None]
  - EATING DISORDER [None]
  - EPILEPSY [None]
  - NASOPHARYNGITIS [None]
  - NAUSEA [None]
  - PYELONEPHRITIS [None]
  - PYREXIA [None]
  - TENDERNESS [None]
  - VOMITING [None]
